FAERS Safety Report 13204437 (Version 1)
Quarter: 2017Q1

REPORT INFORMATION
  Report Type: Spontaneous
  Country: GB (occurrence: GB)
  Receive Date: 20170209
  Receipt Date: 20170209
  Transmission Date: 20170428
  Serious: Yes (Other)
  Sender: FDA-Public Use
  Company Number: GB-MYLANLABS-2017M1002232

PATIENT

DRUGS (3)
  1. CANDESARTAN [Suspect]
     Active Substance: CANDESARTAN
     Indication: PRODUCT USED FOR UNKNOWN INDICATION
     Dosage: UNK
     Route: 065
  2. VALSARTAN. [Suspect]
     Active Substance: VALSARTAN
     Indication: PRODUCT USED FOR UNKNOWN INDICATION
     Dosage: 40 MG, UNK
  3. DOXAZOSIN TEVA [Suspect]
     Active Substance: DOXAZOSIN MESYLATE
     Indication: PRODUCT USED FOR UNKNOWN INDICATION
     Dosage: UNK
     Route: 065

REACTIONS (12)
  - Feeling abnormal [Unknown]
  - Stress [Unknown]
  - Dyspnoea [Unknown]
  - Dizziness [Unknown]
  - Condition aggravated [None]
  - Chest pain [Unknown]
  - Fatigue [Unknown]
  - Chest discomfort [Unknown]
  - Malaise [Unknown]
  - Headache [Unknown]
  - Heart rate irregular [Unknown]
  - Cardiac flutter [Unknown]
